FAERS Safety Report 6286314-1 (Version None)
Quarter: 2009Q3

REPORT INFORMATION
  Report Type: 
  Country: None (occurrence: None)
  Receive Date: 20090728
  Receipt Date: 20080924
  Transmission Date: 20100115
  Serious: No
  Sender: FDA-Public Use
  Company Number: US-TYCO HEALTHCARE/MALLINCKRODT-T200801573

PATIENT

DRUGS (2)
  1. ACETAMINOPHEN AND HYDROCODONE BITARTRATE [Suspect]
     Indication: PAIN
     Dosage: UNK, PRN
     Dates: start: 20080717, end: 20080923
  2. CELEBREX [Concomitant]
     Indication: ARTHRITIS
     Dosage: UNK, QD
     Route: 048

REACTIONS (4)
  - AGITATION [None]
  - INSOMNIA [None]
  - PRURITUS [None]
  - URTICARIA [None]
